FAERS Safety Report 9805580 (Version 1)
Quarter: 2014Q1

REPORT INFORMATION
  Report Type: Spontaneous
  Country: US (occurrence: None)
  Receive Date: 20140108
  Receipt Date: 20140108
  Transmission Date: 20141002
  Serious: Yes (Hospitalization)
  Sender: FDA-Public Use
  Company Number: None

PATIENT
  Age: 64 Year
  Sex: Male
  Weight: 118.2 kg

DRUGS (1)
  1. CASODEX [Suspect]

REACTIONS (4)
  - Agitation [None]
  - Anxiety [None]
  - Diarrhoea [None]
  - Incorrect dose administered [None]
